FAERS Safety Report 7374390-4 (Version None)
Quarter: 2011Q1

REPORT INFORMATION
  Report Type: 
  Country: None (occurrence: None)
  Receive Date: 20110317
  Receipt Date: 20110301
  Transmission Date: 20110831
  Serious: Yes (Hospitalization, Other)
  Sender: FDA-Public Use
  Company Number: JPI-P-014070

PATIENT
  Age: 70 Year
  Sex: Female
  Weight: 78.9259 kg

DRUGS (3)
  1. XYREM [Suspect]
     Indication: FIBROMYALGIA
     Dosage: 2 IN 1 D, ORAL; 7 GM (3.5 GM, 2 IN 1 D),ORAL
     Route: 048
     Dates: start: 20070701, end: 20110101
  2. XYREM [Suspect]
     Indication: FIBROMYALGIA
     Dosage: 2 IN 1 D, ORAL; 7 GM (3.5 GM, 2 IN 1 D),ORAL
     Route: 048
     Dates: start: 20110302
  3. UNSPECIFIED CONCOMITANT MEDICATION [Concomitant]

REACTIONS (4)
  - CAROTID ARTERY STENT REMOVAL [None]
  - CHEST PAIN [None]
  - CORONARY ARTERIAL STENT INSERTION [None]
  - CORONARY ARTERY OCCLUSION [None]
